FAERS Safety Report 15292196 (Version 1)
Quarter: 2018Q3

REPORT INFORMATION
  Report Type: Spontaneous
  Country: US (occurrence: US)
  Receive Date: 20180806
  Receipt Date: 20180806
  Transmission Date: 20181010
  Serious: Yes (Hospitalization)
  Sender: FDA-Public Use
  Company Number: None

PATIENT
  Sex: Female

DRUGS (15)
  1. LEVOTHYROXIN [Concomitant]
     Active Substance: LEVOTHYROXINE
  2. LINZESS [Concomitant]
     Active Substance: LINACLOTIDE
  3. MOUTH RINSE [Concomitant]
     Active Substance: EUCALYPTOL\MENTHOL\METHYL SALICYLATE\THYMOL
  4. PLAQUENIL [Concomitant]
     Active Substance: HYDROXYCHLOROQUINE SULFATE
  5. TRAMADOL. [Concomitant]
     Active Substance: TRAMADOL
  6. BENLYSTA [Suspect]
     Active Substance: BELIMUMAB
     Indication: SYSTEMIC LUPUS ERYTHEMATOSUS
     Dosage: ?          OTHER FREQUENCY:WEEKLY;?
     Route: 058
     Dates: start: 20180113
  7. HYOSCYAMINE. [Concomitant]
     Active Substance: HYOSCYAMINE
  8. TEMAZEPAM. [Concomitant]
     Active Substance: TEMAZEPAM
  9. ELIDEL [Concomitant]
     Active Substance: PIMECROLIMUS
  10. PANTOPRAZOLE [Concomitant]
     Active Substance: PANTOPRAZOLE
  11. LOTEMAX [Concomitant]
     Active Substance: LOTEPREDNOL ETABONATE
  12. VIVELLE?DOT [Concomitant]
     Active Substance: ESTRADIOL
  13. LEUCOVOR CA [Concomitant]
  14. NAPROXEN. [Concomitant]
     Active Substance: NAPROXEN
  15. TOPAMAX [Concomitant]
     Active Substance: TOPIRAMATE

REACTIONS (1)
  - Sepsis [None]
